FAERS Safety Report 10234902 (Version 3)
Quarter: 2014Q3

REPORT INFORMATION
  Report Type: Report from Study
  Country: DE (occurrence: DE)
  Receive Date: 20140613
  Receipt Date: 20140714
  Transmission Date: 20150326
  Serious: Yes (Death)
  Sender: FDA-Public Use
  Company Number: DE-BEH-2014043014

PATIENT
  Age: 79 Year
  Sex: Male
  Weight: 83 kg

DRUGS (9)
  1. PANTOPRAZOL 20 [Concomitant]
  2. PRIVIGEN [Suspect]
     Active Substance: HUMAN IMMUNOGLOBULIN G
     Indication: CHRONIC LYMPHOCYTIC LEUKAEMIA
     Dosage: STRENGH: 100 MG/ML; TOTAL DOSE: 30 G
     Dates: start: 20140307, end: 20140307
  3. PREDNISOLUT [Concomitant]
     Active Substance: PREDNISOLONE
     Indication: PREMEDICATION
     Route: 042
     Dates: start: 20140307, end: 20140307
  4. PRIVIGEN [Suspect]
     Active Substance: HUMAN IMMUNOGLOBULIN G
     Indication: INFECTION
     Dosage: STRENGTH: 100 MG/ML; TOTAL DOSE: 30 G
     Dates: start: 20140306, end: 20140306
  5. SIMVASTATIN 40 [Concomitant]
     Active Substance: SIMVASTATIN
  6. ALLOPURINOL 100 [Concomitant]
     Active Substance: ALLOPURINOL
  7. PREDNISOLUT [Concomitant]
     Active Substance: PREDNISOLONE
     Route: 042
     Dates: start: 20140306, end: 20140306
  8. PRIVIGEN [Suspect]
     Active Substance: HUMAN IMMUNOGLOBULIN G
     Indication: INFECTION
     Dosage: STRENGTH: 100 MG/ML; TOTAL DOSE: 30 G
     Dates: start: 20140306, end: 20140306
  9. SYMBICORT [Concomitant]
     Active Substance: BUDESONIDE\FORMOTEROL FUMARATE DIHYDRATE

REACTIONS (1)
  - Death [Fatal]

NARRATIVE: CASE EVENT DATE: 201404
